FAERS Safety Report 25871110 (Version 2)
Quarter: 2025Q4

REPORT INFORMATION
  Report Type: Spontaneous
  Country: EU (occurrence: EU)
  Receive Date: 20251001
  Receipt Date: 20251126
  Transmission Date: 20260119
  Serious: Yes (Disabling, Other)
  Sender: SANOFI AVENTIS
  Company Number: EU-SA-2025SA293105

PATIENT
  Age: 42 Year
  Sex: Male

DRUGS (2)
  1. DUPIXENT [Suspect]
     Active Substance: DUPILUMAB
     Indication: Asthma
     Dosage: 300 MG EVERY 2 WEEKS
     Route: 058
     Dates: start: 20250509, end: 20250622
  2. DUPIXENT [Suspect]
     Active Substance: DUPILUMAB
     Indication: Chronic rhinosinusitis with nasal polyps

REACTIONS (7)
  - Eosinophilic granulomatosis with polyangiitis [Not Recovered/Not Resolved]
  - Antineutrophil cytoplasmic antibody positive [Unknown]
  - Skin lesion [Unknown]
  - Paraesthesia [Unknown]
  - Purpura [Unknown]
  - Diarrhoea [Unknown]
  - Myalgia [Unknown]

NARRATIVE: CASE EVENT DATE: 20250101
